FAERS Safety Report 22192026 (Version 1)
Quarter: 2023Q2

REPORT INFORMATION
  Report Type: Spontaneous
  Country: NA (occurrence: NA)
  Receive Date: 20230410
  Receipt Date: 20230410
  Transmission Date: 20230721
  Serious: Yes (Other)
  Sender: FDA-Public Use
  Company Number: NA-GSK-NA2023GSK048878

PATIENT

DRUGS (6)
  1. LAMIVUDINE [Suspect]
     Active Substance: LAMIVUDINE
     Indication: HIV infection
     Dosage: UNK
     Dates: start: 201207
  2. LAMIVUDINE [Suspect]
     Active Substance: LAMIVUDINE
     Dosage: UNK
     Dates: start: 201802, end: 202002
  3. TENOFOVIR DISOPROXIL FUMARATE [Suspect]
     Active Substance: TENOFOVIR DISOPROXIL FUMARATE
     Indication: HIV infection
     Dosage: UNK
     Dates: start: 201207
  4. TENOFOVIR DISOPROXIL FUMARATE [Suspect]
     Active Substance: TENOFOVIR DISOPROXIL FUMARATE
     Dosage: UNK
     Dates: start: 201802, end: 202002
  5. EFAVIRENZ [Suspect]
     Active Substance: EFAVIRENZ
     Indication: HIV infection
     Dosage: UNK
     Dates: start: 201207
  6. EFAVIRENZ [Suspect]
     Active Substance: EFAVIRENZ
     Dosage: UNK
     Dates: start: 201802, end: 202002

REACTIONS (14)
  - Aplasia pure red cell [Recovered/Resolved]
  - Pathogen resistance [Unknown]
  - Viral mutation identified [Unknown]
  - Fatigue [Unknown]
  - Renal impairment [Recovered/Resolved]
  - Renal injury [Recovered/Resolved]
  - Anaemia [Recovered/Resolved]
  - Oesophageal candidiasis [Unknown]
  - Acquired immunodeficiency syndrome [Unknown]
  - Virologic failure [Recovered/Resolved]
  - Toxicity to various agents [Recovered/Resolved]
  - Treatment noncompliance [Unknown]
  - Therapy interrupted [Unknown]
  - Treatment failure [Unknown]

NARRATIVE: CASE EVENT DATE: 20190201
